FAERS Safety Report 22166101 (Version 8)
Quarter: 2025Q2

REPORT INFORMATION
  Report Type: Spontaneous
  Country: US (occurrence: US)
  Receive Date: 20230403
  Receipt Date: 20250429
  Transmission Date: 20250716
  Serious: Yes (Other)
  Sender: PFIZER
  Company Number: US-PFIZER INC-PV202300057522

PATIENT
  Age: 72 Year
  Sex: Female

DRUGS (6)
  1. TALZENNA [Suspect]
     Active Substance: TALAZOPARIB TOSYLATE
     Indication: Breast cancer female
  2. TALZENNA [Suspect]
     Active Substance: TALAZOPARIB TOSYLATE
     Indication: Iron deficiency anaemia
     Dosage: 0.5 MG, 1X/DAY
     Route: 048
  3. TALZENNA [Suspect]
     Active Substance: TALAZOPARIB TOSYLATE
     Dosage: 0.5 MG, DAILY (2 TABLETS (0.5 MG) ONCE DAILY)
     Route: 048
  4. TALZENNA [Suspect]
     Active Substance: TALAZOPARIB TOSYLATE
  5. TALZENNA [Suspect]
     Active Substance: TALAZOPARIB TOSYLATE
     Dosage: 0.5 MG, 1X/DAY (2 TABLETS (0.5 MG) ONCE DAILY)
     Route: 048
  6. TALZENNA [Suspect]
     Active Substance: TALAZOPARIB TOSYLATE
     Dosage: 0.5 MG, DAILY (1 CAPSULE)
     Route: 048

REACTIONS (2)
  - Dementia [Unknown]
  - Incorrect dose administered [Unknown]
